FAERS Safety Report 10049787 (Version 1)
Quarter: 2014Q1

REPORT INFORMATION
  Report Type: Spontaneous
  Country: US (occurrence: None)
  Receive Date: 20140328
  Receipt Date: 20140328
  Transmission Date: 20141002
  Serious: Yes (Hospitalization)
  Sender: FDA-Public Use
  Company Number: CIO14021271

PATIENT
  Sex: Male

DRUGS (2)
  1. NYQUIL, FORM/VERSION/FLAVOR UNKNOWN(ETHANOL UNKNOWN UNK, CHLORPHENAMINE MALEATE UNKNOWN UNK, DEXTROMETHORPHAN HYDROBROMIDE UNKNOWN UNK, DIPHENHYDRAMINE HYDROCHLORIDE UNKNOWN UNK, DOXYLAMINE SUCCINATE UNKNOWN UNK, PARACETAMOL UNKNOWN UNK, PSEUDOEPHEDRINE [Suspect]
  2. ABILIFY [Suspect]

REACTIONS (19)
  - Pleurisy [None]
  - Respiratory tract infection [None]
  - Confusional state [None]
  - Chest pain [None]
  - Tremor [None]
  - Restlessness [None]
  - Agitation [None]
  - Impulsive behaviour [None]
  - Feeling abnormal [None]
  - Night sweats [None]
  - Hyperhidrosis [None]
  - Sedation [None]
  - Oropharyngeal discomfort [None]
  - Aphagia [None]
  - Poor quality sleep [None]
  - Stress [None]
  - Irritability [None]
  - Weight decreased [None]
  - Mania [None]
